FAERS Safety Report 16306942 (Version 1)
Quarter: 2019Q2

REPORT INFORMATION
  Report Type: Spontaneous
  Country: BR (occurrence: BR)
  Receive Date: 20190513
  Receipt Date: 20190513
  Transmission Date: 20190711
  Serious: Yes (Other)
  Sender: FDA-Public Use
  Company Number: BR-009507513-1905BRA004102

PATIENT
  Sex: Male

DRUGS (1)
  1. PEMBROLIZUMAB. [Suspect]
     Active Substance: PEMBROLIZUMAB
     Indication: BLADDER CANCER
     Dosage: C4 (PROBABLY REFERRING TO THE 4TH CYCLE)

REACTIONS (3)
  - Product use in unapproved indication [Unknown]
  - Neutropenia [Recovered/Resolved]
  - Hyperthyroidism [Unknown]
